FAERS Safety Report 10685783 (Version 7)
Quarter: 2015Q4

REPORT INFORMATION
  Report Type: Spontaneous
  Country: US (occurrence: US)
  Receive Date: 20141231
  Receipt Date: 20151223
  Transmission Date: 20160304
  Serious: Yes (Disabling, Congenital Anomaly, Other)
  Sender: FDA-Public Use
  Company Number: US-APOTEX-2014AP006404

PATIENT

DRUGS (14)
  1. PEPCID [Concomitant]
     Active Substance: FAMOTIDINE
     Indication: PRODUCT USED FOR UNKNOWN INDICATION
     Dosage: 20 MG, BID, DILUTE TO 5ML WITH NORMAL SALINE
     Route: 064
     Dates: start: 20011022
  2. DEMEROL [Concomitant]
     Active Substance: MEPERIDINE HYDROCHLORIDE
     Indication: PRODUCT USED FOR UNKNOWN INDICATION
     Dosage: Q4H PRN
     Route: 064
  3. REGLAN [Concomitant]
     Active Substance: METOCLOPRAMIDE HYDROCHLORIDE
     Indication: NAUSEA
     Dosage: 10 MG, QID, AS NEEDED
     Route: 064
     Dates: start: 20011023
  4. ATIVAN [Concomitant]
     Active Substance: LORAZEPAM
     Dosage: 1 UNK, UNK
  5. BENADRYL [Concomitant]
     Active Substance: DIPHENHYDRAMINE HYDROCHLORIDE
     Indication: PRODUCT USED FOR UNKNOWN INDICATION
     Dosage: 25-50 MG, 4-6 HOURS AS NEEDED
     Route: 064
     Dates: start: 20011021
  6. PAXIL [Suspect]
     Active Substance: PAROXETINE HYDROCHLORIDE
     Indication: ANXIETY
     Dosage: 20 MG, Q.AM
     Route: 064
     Dates: start: 20010730
  7. PAXIL [Suspect]
     Active Substance: PAROXETINE HYDROCHLORIDE
     Indication: PANIC ATTACK
  8. VISTARIL [Concomitant]
     Active Substance: HYDROXYZINE PAMOATE
     Indication: PRODUCT USED FOR UNKNOWN INDICATION
     Route: 064
  9. ZOFRAN [Concomitant]
     Active Substance: ONDANSETRON HYDROCHLORIDE
     Indication: NAUSEA
     Dosage: 8 MG, TID
     Route: 064
  10. PEPCID [Concomitant]
     Active Substance: FAMOTIDINE
     Dosage: 40 UNK, BID
     Route: 064
  11. ZOFRAN [Concomitant]
     Active Substance: ONDANSETRON HYDROCHLORIDE
     Dosage: 4 MG, EVERY 8 HOURS, PRN
     Route: 064
     Dates: start: 20011023
  12. ATIVAN [Concomitant]
     Active Substance: LORAZEPAM
     Indication: PRODUCT USED FOR UNKNOWN INDICATION
     Dosage: 1 UNK, UNK
     Route: 064
  13. TYLENOL [Concomitant]
     Active Substance: ACETAMINOPHEN
     Indication: PAIN
     Dosage: 1-2 TABLETS, EVERY 4 HOURS, PRN
     Route: 064
     Dates: start: 20011022
  14. PRENATAL VITAMINS                  /07426201/ [Concomitant]
     Active Substance: ASCORBIC ACID\BIOTIN\MINERALS\NIACIN\RETINOL\TOCOPHEROL\VITAMIN B\VITAMIN D
     Indication: PRODUCT USED FOR UNKNOWN INDICATION
     Route: 064

REACTIONS (19)
  - Foetal exposure during pregnancy [Unknown]
  - Attention deficit/hyperactivity disorder [Unknown]
  - Dyspraxia [Not Recovered/Not Resolved]
  - Otitis media chronic [Recovering/Resolving]
  - Respiratory distress [Recovered/Resolved]
  - Congenital anomaly [Unknown]
  - Sleep disorder [Not Recovered/Not Resolved]
  - Mental retardation [Unknown]
  - Sleep apnoea syndrome [Unknown]
  - Tympanic membrane perforation [Unknown]
  - Impulsive behaviour [Not Recovered/Not Resolved]
  - Sedation [Recovered/Resolved]
  - Respiratory depression [Recovered/Resolved]
  - Autism spectrum disorder [Unknown]
  - Epilepsy [Not Recovered/Not Resolved]
  - Speech disorder developmental [Recovering/Resolving]
  - Developmental delay [Recovering/Resolving]
  - Middle ear disorder [Unknown]
  - Persistent foetal circulation [Unknown]

NARRATIVE: CASE EVENT DATE: 20020612
